FAERS Safety Report 20185272 (Version 2)
Quarter: 2022Q1

REPORT INFORMATION
  Report Type: Report from Study
  Country: CA (occurrence: CA)
  Receive Date: 20211215
  Receipt Date: 20220117
  Transmission Date: 20220423
  Serious: Yes (Other)
  Sender: FDA-Public Use
  Company Number: CA-ABBVIE-21K-028-4198391-00

PATIENT
  Age: 68 Year
  Sex: Female

DRUGS (1)
  1. HUMIRA [Suspect]
     Active Substance: ADALIMUMAB
     Indication: Product used for unknown indication
     Route: 058
     Dates: start: 20191202, end: 2020

REACTIONS (8)
  - Atypical femur fracture [Unknown]
  - Medical device implantation [Unknown]
  - Grip strength [Unknown]
  - Carpal tunnel syndrome [Unknown]
  - Neuropathy peripheral [Unknown]
  - Road traffic accident [Unknown]
  - Arthritis infective [Unknown]
  - Arthralgia [Unknown]

NARRATIVE: CASE EVENT DATE: 20211209
